FAERS Safety Report 23272431 (Version 1)
Quarter: 2023Q4

REPORT INFORMATION
  Report Type: Spontaneous
  Country: US (occurrence: None)
  Receive Date: 20231207
  Receipt Date: 20231207
  Transmission Date: 20240110
  Serious: Yes (Hospitalization)
  Sender: FDA-Public Use
  Company Number: None

PATIENT
  Sex: Female

DRUGS (2)
  1. CUVITRU [Suspect]
     Active Substance: HUMAN IMMUNOGLOBULIN G
     Indication: Immunodeficiency common variable
     Dosage: 28GM EVERY WEEK SC
     Route: 058
     Dates: start: 201810
  2. CUVITRU [Suspect]
     Active Substance: HUMAN IMMUNOGLOBULIN G
     Indication: Immunodeficiency common variable
     Dosage: 28GM EVERY WEEK SC
     Route: 058
     Dates: start: 201810

REACTIONS (4)
  - Pulmonary embolism [None]
  - Respiratory failure [None]
  - Systemic lupus erythematosus [None]
  - Disease complication [None]
